FAERS Safety Report 20533126 (Version 1)
Quarter: 2022Q1

REPORT INFORMATION
  Report Type: Spontaneous
  Country: US (occurrence: None)
  Receive Date: 20220301
  Receipt Date: 20220301
  Transmission Date: 20220423
  Serious: No
  Sender: FDA-Public Use
  Company Number: None

PATIENT
  Sex: Male

DRUGS (3)
  1. PRALUENT [Suspect]
     Active Substance: ALIROCUMAB
     Indication: Hyperlipidaemia
     Dosage: OTHER FREQUENCY : EVERY 2 WEEKS;?
     Route: 058
     Dates: start: 20210428, end: 20220127
  2. Levothyroxine 0.088mg [Concomitant]
     Dates: start: 20210428
  3. LOSARTAN [Concomitant]
     Active Substance: LOSARTAN
     Dates: start: 20210428

REACTIONS (1)
  - Arthralgia [None]
